FAERS Safety Report 16760784 (Version 1)
Quarter: 2019Q3

REPORT INFORMATION
  Report Type: Spontaneous
  Country: AR (occurrence: AR)
  Receive Date: 20190830
  Receipt Date: 20190830
  Transmission Date: 20191005
  Serious: Yes (Other)
  Sender: FDA-Public Use
  Company Number: AR-PFIZER INC-2019369940

PATIENT
  Age: 60 Year
  Sex: Male

DRUGS (3)
  1. TRAPAX [Suspect]
     Active Substance: LORAZEPAM
     Indication: SCHIZOPHRENIA
     Dosage: 1 DF, 2X/DAY (1 TABLET AT MORNING, 1 TABLET AT NIGHT)
     Dates: start: 2003
  2. RIVOTRIL [Concomitant]
     Active Substance: CLONAZEPAM
  3. RISPERIDON [Concomitant]
     Active Substance: RISPERIDONE

REACTIONS (7)
  - Drug dependence [Unknown]
  - Hepatotoxicity [Unknown]
  - Drug tolerance [Unknown]
  - Off label use [Unknown]
  - Product use in unapproved indication [Unknown]
  - Drug ineffective [Unknown]
  - Dyspepsia [Unknown]

NARRATIVE: CASE EVENT DATE: 2003
